FAERS Safety Report 6339828-X (Version None)
Quarter: 2009Q3

REPORT INFORMATION
  Report Type: 
  Country: None (occurrence: None)
  Receive Date: 20090903
  Receipt Date: 20090831
  Transmission Date: 20100115
  Serious: Yes (Life-Threatening, Hospitalization)
  Sender: FDA-Public Use
  Company Number: PHHY2009FR36991

PATIENT
  Sex: Male

DRUGS (13)
  1. LEPONEX [Suspect]
     Indication: SCHIZOPHRENIA
     Dosage: 100 MG
     Dates: end: 20090410
  2. TAZOCILLINE [Suspect]
     Dosage: UNK
     Dates: start: 20090321, end: 20090410
  3. CIFLOX [Suspect]
     Dosage: UNK
     Dates: start: 20090321, end: 20090410
  4. VANCOMYCIN [Suspect]
     Dosage: UNK
     Dates: start: 20090409, end: 20090411
  5. ESOMEPRAZOLE [Suspect]
     Dosage: 40 MG, QD
     Dates: end: 20090410
  6. BACLOFEN [Concomitant]
     Dosage: 3 DF, TID
  7. DITROPAN [Concomitant]
     Dosage: 3 DF, QD
  8. TROSPIUM CHLORIDE [Concomitant]
     Dosage: 2 DF DAILY
  9. FORLAX [Concomitant]
  10. TRIFLUCAN [Concomitant]
     Dosage: UNK
     Dates: start: 20090409
  11. BRISTOPEN [Concomitant]
     Dosage: UNK
     Dates: start: 20090406, end: 20090409
  12. GENTAMICIN [Concomitant]
     Dosage: UNK
     Dates: start: 20090326, end: 20090406
  13. GENTAMICIN [Concomitant]
     Dosage: UNK
     Dates: start: 20090401

REACTIONS (3)
  - AGRANULOCYTOSIS [None]
  - DECUBITUS ULCER [None]
  - HAEMORRHAGE [None]
